FAERS Safety Report 10042680 (Version 2)
Quarter: 2014Q1

REPORT INFORMATION
  Report Type: Report from Study
  Country: US (occurrence: US)
  Receive Date: 20140327
  Receipt Date: 20140327
  Transmission Date: 20141002
  Serious: Yes (Hospitalization, Other)
  Sender: FDA-Public Use
  Company Number: PHEH2014US002101

PATIENT
  Age: 69 Year
  Sex: Female

DRUGS (3)
  1. EXTAVIA [Suspect]
     Indication: MULTIPLE SCLEROSIS
     Dosage: 1 ML, QOD
     Route: 058
  2. EXTAVIA [Suspect]
     Dosage: 0.25 MG QOD
     Route: 058
  3. INTERFERON [Suspect]
     Dosage: UNK UKN, UNK
     Dates: start: 1984

REACTIONS (3)
  - Posterior reversible encephalopathy syndrome [Unknown]
  - Convulsion [Recovered/Resolved]
  - Hypertension [Unknown]
